FAERS Safety Report 10957384 (Version 1)
Quarter: 2015Q1

REPORT INFORMATION
  Report Type: Spontaneous
  Country: US (occurrence: US)
  Receive Date: 20150326
  Receipt Date: 20150326
  Transmission Date: 20150721
  Serious: No
  Sender: FDA-Public Use
  Company Number: US-SA-2015SA010967

PATIENT
  Age: 57 Year
  Sex: Female

DRUGS (1)
  1. AUBAGIO [Suspect]
     Active Substance: TERIFLUNOMIDE
     Route: 048
     Dates: start: 20141231

REACTIONS (7)
  - Fatigue [Unknown]
  - Headache [Unknown]
  - Asthenia [Unknown]
  - Diarrhoea [Unknown]
  - Sleep disorder [Unknown]
  - Abdominal discomfort [Unknown]
  - Hot flush [Unknown]

NARRATIVE: CASE EVENT DATE: 20150202
